FAERS Safety Report 5891720-0 (Version None)
Quarter: 2008Q3

REPORT INFORMATION
  Report Type: 
  Country: None (occurrence: None)
  Receive Date: 20080922
  Receipt Date: 20080910
  Transmission Date: 20090109
  Serious: Yes (Hospitalization)
  Sender: FDA-Public Use
  Company Number: AU-B.I. PHARMACEUTICALS,INC./RIDGEFIELD-2008-BP-13313AU

PATIENT
  Sex: Male

DRUGS (2)
  1. MOBIC [Suspect]
     Indication: OSTEOARTHRITIS
  2. COLGOUT [Concomitant]

REACTIONS (2)
  - BRAIN STEM INFARCTION [None]
  - VERTIGO POSITIONAL [None]
